FAERS Safety Report 8292136-2 (Version None)
Quarter: 2012Q2

REPORT INFORMATION
  Report Type: 
  Country: None (occurrence: None)
  Receive Date: 20120417
  Receipt Date: 20111230
  Transmission Date: 20120825
  Serious: No
  Sender: FDA-Public Use
  Company Number: US-ASTRAZENECA-2012SE00157

PATIENT
  Age: 35 Year
  Sex: Male
  Weight: 89.8 kg

DRUGS (7)
  1. NEXIUM [Suspect]
     Indication: GASTROOESOPHAGEAL REFLUX DISEASE
     Route: 048
  2. ZOLOFT [Concomitant]
     Indication: BIPOLAR DISORDER
  3. TENEX [Concomitant]
     Indication: OBSESSIVE-COMPULSIVE DISORDER
  4. TRICOR [Concomitant]
     Indication: BLOOD CHOLESTEROL ABNORMAL
  5. LAMICAL [Concomitant]
     Indication: BIPOLAR DISORDER
  6. NIASTAN [Concomitant]
     Indication: BLOOD CHOLESTEROL ABNORMAL
  7. AMBIEN [Concomitant]
     Indication: SLEEP DISORDER

REACTIONS (3)
  - APHAGIA [None]
  - INSOMNIA [None]
  - DRUG DOSE OMISSION [None]
